FAERS Safety Report 19279134 (Version 1)
Quarter: 2021Q2

REPORT INFORMATION
  Report Type: Report from Study
  Country: US (occurrence: US)
  Receive Date: 20210520
  Receipt Date: 20210520
  Transmission Date: 20210717
  Serious: Yes (Hospitalization)
  Sender: FDA-Public Use
  Company Number: US-EISAI MEDICAL RESEARCH-EC-2021-092288

PATIENT
  Age: 80 Year
  Sex: Male

DRUGS (1)
  1. LENVIMA [Suspect]
     Active Substance: LENVATINIB
     Indication: THYROID CANCER
     Route: 048
     Dates: start: 20210501, end: 20210510

REACTIONS (8)
  - Headache [Recovered/Resolved]
  - Musculoskeletal stiffness [Unknown]
  - Lethargy [Unknown]
  - Seizure [Unknown]
  - Aphasia [Unknown]
  - Osteoarthritis [Unknown]
  - Incontinence [Unknown]
  - Somnolence [Unknown]

NARRATIVE: CASE EVENT DATE: 202105
